FAERS Safety Report 6512398-9 (Version None)
Quarter: 2009Q4

REPORT INFORMATION
  Report Type: 
  Country: None (occurrence: None)
  Receive Date: 20091222
  Receipt Date: 20091211
  Transmission Date: 20100525
  Serious: Yes (Hospitalization)
  Sender: FDA-Public Use
  Company Number: US-ELI_LILLY_AND_COMPANY-US200912003102

PATIENT
  Sex: Female

DRUGS (12)
  1. FORTEO [Suspect]
     Dosage: UNK, DAILY (1/D)
     Dates: start: 20090701
  2. AMLODIPINE [Concomitant]
  3. ASPIRIN [Concomitant]
  4. CENTRUM /00554501/ [Concomitant]
  5. LEXAPRO [Concomitant]
  6. MAGNESIUM [Concomitant]
  7. ZINC [Concomitant]
  8. PANTOPRAZOLE [Concomitant]
  9. ALPRAZOLAM [Concomitant]
  10. DIOVAN [Concomitant]
  11. TEMAZEPAM [Concomitant]
  12. NITROFURAN [Concomitant]

REACTIONS (6)
  - BLOOD URINE PRESENT [None]
  - DIZZINESS [None]
  - FALL [None]
  - HIP FRACTURE [None]
  - MOBILITY DECREASED [None]
  - URINARY TRACT INFECTION [None]
